FAERS Safety Report 8890783 (Version 1)
Quarter: 2012Q4

REPORT INFORMATION
  Report Type: 
  Country: US (occurrence: US)
  Receive Date: 20121106
  Receipt Date: 20121106
  Transmission Date: 20130627
  Serious: Yes (Death, Hospitalization)
  Sender: FDA-Public Use
  Company Number: PHHY2012US101224

PATIENT
  Age: 70 Year
  Sex: Male

DRUGS (5)
  1. ENOXAPARIN SODIUM [Suspect]
     Indication: THROMBOSIS PROPHYLAXIS
     Dosage: 30 mg, Q12H
     Route: 058
  2. MORPHINE SULFATE [Concomitant]
     Indication: PAIN
  3. THIAMINE [Concomitant]
     Indication: PROPHYLAXIS
  4. LORAZEPAM [Concomitant]
     Indication: PROPHYLAXIS
  5. PLASMA [Concomitant]

REACTIONS (10)
  - Staphylococcal sepsis [Fatal]
  - Subdural haematoma [Unknown]
  - Necrosis [Unknown]
  - Loss of consciousness [Unknown]
  - Somnolence [Unknown]
  - Posture abnormal [Unknown]
  - Kussmaul respiration [Unknown]
  - Mydriasis [Unknown]
  - Intracranial pressure increased [Unknown]
  - Brain herniation [Unknown]
